FAERS Safety Report 17753920 (Version 1)
Quarter: 2020Q2

REPORT INFORMATION
  Report Type: Spontaneous
  Country: CN (occurrence: CN)
  Receive Date: 20200507
  Receipt Date: 20200507
  Transmission Date: 20200714
  Serious: Yes (Life-Threatening, Hospitalization)
  Sender: FDA-Public Use
  Company Number: CN-SUN PHARMACEUTICAL INDUSTRIES LTD-2020R1-245795

PATIENT
  Age: 49 Year
  Sex: Male
  Weight: 134 kg

DRUGS (1)
  1. OCTREOTIDE. [Suspect]
     Active Substance: OCTREOTIDE
     Indication: ACROMEGALY
     Dosage: 40 MILLIGRAM, MONTHLY
     Route: 030

REACTIONS (3)
  - Cardiac failure congestive [Recovering/Resolving]
  - Drug ineffective [Unknown]
  - Cardiomyopathy [Recovering/Resolving]
